FAERS Safety Report 16944492 (Version 1)
Quarter: 2019Q4

REPORT INFORMATION
  Report Type: Report from Study
  Country: VN (occurrence: VN)
  Receive Date: 20191022
  Receipt Date: 20191022
  Transmission Date: 20200122
  Serious: Yes (Hospitalization)
  Sender: FDA-Public Use
  Company Number: PHHY2019VN221415

PATIENT
  Age: 49 Year
  Sex: Male
  Weight: 63 kg

DRUGS (1)
  1. FRAIZERON [Suspect]
     Active Substance: SECUKINUMAB
     Indication: PSORIASIS
     Dosage: 300 MG, UNK
     Route: 058
     Dates: start: 20180514

REACTIONS (7)
  - Pruritus [Recovering/Resolving]
  - Psoriasis [Recovering/Resolving]
  - Rash erythematous [Not Recovered/Not Resolved]
  - Dermatitis allergic [Recovering/Resolving]
  - Erythema [Unknown]
  - Dermatitis contact [Not Recovered/Not Resolved]
  - Skin plaque [Not Recovered/Not Resolved]

NARRATIVE: CASE EVENT DATE: 20190917
